FAERS Safety Report 5665038-5 (Version None)
Quarter: 2008Q1

REPORT INFORMATION
  Report Type: 
  Country: None (occurrence: None)
  Receive Date: 20080314
  Receipt Date: 20080304
  Transmission Date: 20080703
  Serious: Yes (Other)
  Sender: FDA-Public Use
  Company Number: US-PFIZER INC-2008020602

PATIENT
  Sex: Female
  Weight: 72.6 kg

DRUGS (3)
  1. GEODON [Suspect]
     Indication: MENTAL DISORDER
  2. LAMICTAL [Concomitant]
  3. STRATTERA [Concomitant]

REACTIONS (2)
  - HALLUCINATION [None]
  - HALLUCINATION, AUDITORY [None]
